FAERS Safety Report 15090539 (Version 3)
Quarter: 2024Q3

REPORT INFORMATION
  Report Type: Spontaneous
  Country: US (occurrence: US)
  Receive Date: 20180629
  Receipt Date: 20240912
  Transmission Date: 20241016
  Serious: Yes (Hospitalization, Other)
  Sender: PFIZER
  Company Number: US-PFIZER INC-2018257840

PATIENT
  Age: 66 Year
  Sex: Male
  Weight: 118 kg

DRUGS (2)
  1. SOMAVERT [Suspect]
     Active Substance: PEGVISOMANT
     Indication: Pituitary tumour
     Dosage: 30 MG
     Dates: start: 2013
  2. SOMAVERT [Suspect]
     Active Substance: PEGVISOMANT
     Dosage: EVERY OTHER DAY
     Dates: start: 2018

REACTIONS (7)
  - Atrial flutter [Recovered/Resolved]
  - Pleural effusion [Recovered/Resolved]
  - Atelectasis [Unknown]
  - Immobile [Unknown]
  - Insulin-like growth factor decreased [Recovered/Resolved]
  - Blood pressure decreased [Unknown]
  - Malaise [Unknown]

NARRATIVE: CASE EVENT DATE: 20160101
